FAERS Safety Report 16536590 (Version 1)
Quarter: 2019Q3

REPORT INFORMATION
  Report Type: Spontaneous
  Country: US (occurrence: US)
  Receive Date: 20190706
  Receipt Date: 20190706
  Transmission Date: 20191004
  Serious: No
  Sender: FDA-Public Use
  Company Number: US-TEVA-2019-US-1063387

PATIENT
  Sex: Male

DRUGS (1)
  1. TADALAFIL. [Suspect]
     Active Substance: TADALAFIL
     Route: 065
     Dates: start: 20190605

REACTIONS (2)
  - Erectile dysfunction [Unknown]
  - Drug ineffective [Unknown]
